FAERS Safety Report 19476568 (Version 1)
Quarter: 2021Q2

REPORT INFORMATION
  Report Type: Report from Study
  Country: FR (occurrence: FR)
  Receive Date: 20210630
  Receipt Date: 20210630
  Transmission Date: 20210717
  Serious: Yes (Other)
  Sender: FDA-Public Use
  Company Number: FR-EMD SERONO-9247372

PATIENT
  Age: 67 Year
  Sex: Male
  Weight: 98 kg

DRUGS (5)
  1. ENDOXAN                            /00021101/ [Suspect]
     Active Substance: CYCLOPHOSPHAMIDE
     Dosage: 1400 MG
     Route: 048
     Dates: start: 20210616
  2. ENDOXAN                            /00021101/ [Suspect]
     Active Substance: CYCLOPHOSPHAMIDE
     Indication: DEDIFFERENTIATED LIPOSARCOMA
     Route: 048
     Dates: start: 20210527
  3. AVELUMAB [Suspect]
     Active Substance: AVELUMAB
     Indication: DEDIFFERENTIATED LIPOSARCOMA
     Route: 042
     Dates: start: 20210617
  4. PEXA?VEC [Suspect]
     Active Substance: PEXASTIMOGENE DEVACIREPVEC
     Indication: DEDIFFERENTIATED LIPOSARCOMA
     Dosage: DOSE 1.10?9 IU (INTERNATIONAL UNIT)
     Route: 036
     Dates: start: 20210603
  5. PEXA?VEC [Suspect]
     Active Substance: PEXASTIMOGENE DEVACIREPVEC
     Dosage: DOSE 1.10?9 IU (INTERNATIONAL UNIT)
     Route: 036
     Dates: start: 20210617

REACTIONS (1)
  - Hypotension [Recovered/Resolved]

NARRATIVE: CASE EVENT DATE: 20210617
